FAERS Safety Report 9703368 (Version 1)
Quarter: 2013Q4

REPORT INFORMATION
  Report Type: Spontaneous
  Country: US (occurrence: None)
  Receive Date: 20131121
  Receipt Date: 20131121
  Transmission Date: 20140711
  Serious: Yes (Death)
  Sender: FDA-Public Use
  Company Number: None

PATIENT
  Age: 83 Year
  Sex: Female

DRUGS (1)
  1. GLEEVEC [Suspect]
     Dosage: 2 TABS, DAILY, ORAL
     Route: 048
     Dates: start: 20130905, end: 20131115

REACTIONS (2)
  - Disease progression [None]
  - Unevaluable event [None]
